FAERS Safety Report 6453301-X (Version None)
Quarter: 2009Q4

REPORT INFORMATION
  Report Type: 
  Country: None (occurrence: None)
  Receive Date: 20091123
  Receipt Date: 20091123
  Transmission Date: 20100525
  Serious: Yes (Hospitalization)
  Sender: FDA-Public Use
  Company Number: None

PATIENT
  Age: 61 Year
  Sex: Male
  Weight: 80 kg

DRUGS (13)
  1. AMLODIPINE BESYLATE AND BENAZEPRIL HCL [Suspect]
     Indication: HYPERTENSION
     Dosage: 1 TABLET DAILY PO ^A LONG TIME^
     Route: 048
  2. OMEPRAZOLE [Concomitant]
  3. CARVEDILOL [Concomitant]
  4. SUCRALFATE [Concomitant]
  5. TRIAMTERENE AND HYDROCHLOROTHIAZIDE [Concomitant]
  6. DUTASTERIDE [Concomitant]
  7. LEXAPRO [Concomitant]
  8. SPIRIVA [Concomitant]
  9. TAMSULOSIN [Concomitant]
  10. PROPAFENONE [Concomitant]
  11. NTG SL [Concomitant]
  12. ALBUTEROL [Concomitant]
  13. NORCO -CHRONIC- [Concomitant]

REACTIONS (1)
  - ANGIOEDEMA [None]
